FAERS Safety Report 19809328 (Version 1)
Quarter: 2021Q3

REPORT INFORMATION
  Report Type: Spontaneous
  Country: FR (occurrence: FR)
  Receive Date: 20210908
  Receipt Date: 20210908
  Transmission Date: 20211014
  Serious: Yes (Life-Threatening)
  Sender: FDA-Public Use
  Company Number: FR-PFIZER INC-202101113897

PATIENT
  Age: 67 Year
  Sex: Female
  Weight: 86 kg

DRUGS (6)
  1. CEFAZOLIN [Suspect]
     Active Substance: CEFAZOLIN
     Indication: ANTIBIOTIC PROPHYLAXIS
     Dosage: 3 G, SINGLE
     Route: 042
     Dates: start: 20210727, end: 20210727
  2. ROPIVACAINE HYDROCHLORIDE. [Suspect]
     Active Substance: ROPIVACAINE HYDROCHLORIDE
     Indication: GENERAL ANAESTHESIA
     Dosage: 75 MG, SINGLE
     Route: 042
     Dates: start: 20210727, end: 20210727
  3. REMIFENTANIL [Suspect]
     Active Substance: REMIFENTANIL
     Indication: GENERAL ANAESTHESIA
     Dosage: UNK
     Route: 042
     Dates: end: 20210727
  4. KETAMINE [Suspect]
     Active Substance: KETAMINE
     Indication: GENERAL ANAESTHESIA
     Dosage: 10 MG, SINGLE
     Route: 042
     Dates: start: 20210727, end: 20210727
  5. HYPNOVEL [MIDAZOLAM] [Suspect]
     Active Substance: MIDAZOLAM
     Indication: GENERAL ANAESTHESIA
     Dosage: 1 MG, SINGLE
     Route: 042
     Dates: start: 20210727, end: 20210727
  6. CISATRACURIUM BESILATE [Suspect]
     Active Substance: CISATRACURIUM BESYLATE
     Indication: GENERAL ANAESTHESIA
     Dosage: 40 MG, SINGLE
     Route: 042
     Dates: start: 20210727, end: 20210727

REACTIONS (1)
  - Cardiac arrest [Recovered/Resolved]

NARRATIVE: CASE EVENT DATE: 20210727
